FAERS Safety Report 21605984 (Version 2)
Quarter: 2022Q4

REPORT INFORMATION
  Report Type: Spontaneous
  Country: PT (occurrence: PT)
  Receive Date: 20221117
  Receipt Date: 20221129
  Transmission Date: 20230113
  Serious: Yes (Hospitalization, Other)
  Sender: FDA-Public Use
  Company Number: PT-GLAXOSMITHKLINE-PT2022GSK156282

PATIENT
  Age: 70 Year
  Sex: Male

DRUGS (1)
  1. BUPROPION [Suspect]
     Active Substance: BUPROPION
     Indication: Rapid eye movement sleep behaviour disorder
     Dosage: 300 MILLIGRAM
     Route: 065

REACTIONS (16)
  - Pneumonia aspiration [Recovered/Resolved]
  - Movement disorder [Recovered/Resolved]
  - Lacunar infarction [Recovered/Resolved]
  - Gait inability [Recovered/Resolved]
  - Dysphagia [Recovered/Resolved]
  - Disease progression [Recovered/Resolved]
  - Bradykinesia [Recovered/Resolved]
  - Camptocormia [Recovered/Resolved]
  - Gait disturbance [Recovered/Resolved]
  - Parkinsonian gait [Recovered/Resolved]
  - Dysphonia [Recovered/Resolved]
  - Muscle rigidity [Recovered/Resolved]
  - Parkinsonism [Recovered/Resolved]
  - Dysarthria [Recovered/Resolved]
  - Fall [Recovered/Resolved]
  - General physical health deterioration [Recovered/Resolved]
